FAERS Safety Report 8588470 (Version 3)
Quarter: 2012Q4

REPORT INFORMATION
  Report Type: 
  Country: US (occurrence: US)
  Receive Date: 20120531
  Receipt Date: 20120907
  Transmission Date: 20130627
  Serious: Yes (Other)
  Sender: FDA-Public Use
  Company Number: US-BAYER-2012-053708

PATIENT
  Age: 32 Year
  Sex: Female
  Weight: 67.12 kg

DRUGS (2)
  1. MIRENA [Suspect]
     Indication: CONTRACEPTION
     Dosage: 20 ?g/day
     Route: 015
     Dates: start: 20120524
  2. MIRENA [Suspect]
     Indication: CONTRACEPTION
     Dosage: 20 mcg/24hr, CONT
     Route: 015
     Dates: start: 20120524, end: 20120524

REACTIONS (1)
  - Device dislocation [None]
